FAERS Safety Report 7235000-X (Version None)
Quarter: 2011Q1

REPORT INFORMATION
  Report Type: 
  Country: None (occurrence: None)
  Receive Date: 20110114
  Receipt Date: 20110114
  Transmission Date: 20110831
  Serious: Yes (Life-Threatening, Hospitalization, Other)
  Sender: FDA-Public Use
  Company Number: None

PATIENT
  Age: 49 Year
  Sex: Female
  Weight: 72.5755 kg

DRUGS (1)
  1. OXYMETAZOLINE HYDROCHLORIDE SPRAY [Suspect]
     Indication: NASAL CONGESTION
     Dosage: 2-3 SPRAYS IN EACH NOSTRIL EVERY 12 HRS NASAL
     Route: 045
     Dates: start: 20110105, end: 20110107

REACTIONS (5)
  - HYPERHIDROSIS [None]
  - PRESYNCOPE [None]
  - HEART RATE INCREASED [None]
  - HYPERTENSION [None]
  - VOMITING PROJECTILE [None]
